FAERS Safety Report 9476731 (Version 1)
Quarter: 2013Q3

REPORT INFORMATION
  Report Type: Spontaneous
  Country: US (occurrence: US)
  Receive Date: 20130826
  Receipt Date: 20130826
  Transmission Date: 20140515
  Serious: Yes (Other)
  Sender: FDA-Public Use
  Company Number: US-BRISTOL-MYERS SQUIBB COMPANY-17413303

PATIENT
  Age: 64 Year
  Sex: Male

DRUGS (11)
  1. KENALOG-40 INJ [Suspect]
     Dates: start: 20130116
  2. METFORMIN HCL [Concomitant]
  3. ATORVASTATIN [Concomitant]
  4. CARVEDILOL [Concomitant]
  5. LISINOPRIL [Concomitant]
  6. FUROSEMIDE [Concomitant]
  7. DIGOXIN [Concomitant]
  8. LOVAZA [Concomitant]
  9. PRADAXA [Concomitant]
     Dosage: 1DF:150 DOSE NOT MENTIONED
  10. TRADJENTA [Concomitant]
  11. TIKOSYN [Concomitant]

REACTIONS (1)
  - Blood glucose increased [Unknown]
